FAERS Safety Report 4994155-8 (Version None)
Quarter: 2006Q2

REPORT INFORMATION
  Report Type: 
  Country: None (occurrence: None)
  Receive Date: 20060505
  Receipt Date: 20060425
  Transmission Date: 20061013
  Serious: Yes (Life-Threatening)
  Sender: FDA-Public Use
  Company Number: JP-SANOFI-SYNTHELABO-A01200603265

PATIENT
  Age: 54 Year
  Sex: Male

DRUGS (1)
  1. MYSLEE [Suspect]
     Indication: DRUG USE FOR UNKNOWN INDICATION
     Dosage: 10 MG
     Route: 048
     Dates: start: 20060419, end: 20060420

REACTIONS (2)
  - ANTEROGRADE AMNESIA [None]
  - DEPRESSED LEVEL OF CONSCIOUSNESS [None]
